FAERS Safety Report 9099007 (Version 2)
Quarter: 2013Q1

REPORT INFORMATION
  Report Type: Spontaneous
  Country: IT (occurrence: IT)
  Receive Date: 20130214
  Receipt Date: 20130320
  Transmission Date: 20140127
  Serious: Yes (Hospitalization, Other)
  Sender: FDA-Public Use
  Company Number: IT-ELI_LILLY_AND_COMPANY-IT201302001930

PATIENT
  Age: 68 Year
  Sex: Male

DRUGS (7)
  1. HUMALOG LISPRO [Suspect]
     Indication: DIABETES MELLITUS
     Dosage: 50 DF, QD
     Route: 058
     Dates: start: 20080101
  2. HUMALOG LISPRO - NPL [Suspect]
     Dosage: 24 DF, QD
     Route: 058
     Dates: start: 20080101
  3. METFONORM [Concomitant]
     Dosage: 1 DF, QD
     Route: 048
     Dates: start: 20080101
  4. NEBIVOLOL HYDROCHLORIDE [Concomitant]
  5. MICROSER [Concomitant]
  6. COUMADIN [Concomitant]
     Dosage: 5 MG, UNKNOWN
  7. LASIX [Concomitant]

REACTIONS (1)
  - Hypoglycaemic unconsciousness [Recovered/Resolved]
